FAERS Safety Report 24845030 (Version 1)
Quarter: 2025Q1

REPORT INFORMATION
  Report Type: Spontaneous
  Country: US (occurrence: None)
  Receive Date: 20250114
  Receipt Date: 20250114
  Transmission Date: 20250408
  Serious: No
  Sender: FDA-CTU
  Company Number: None

PATIENT
  Age: 67 Year
  Sex: Female
  Weight: 51.75 kg

DRUGS (13)
  1. PREGABALIN [Suspect]
     Active Substance: PREGABALIN
     Indication: Sciatica
     Dosage: 4 CAPSULES TWICE A DAY ORAL ?
     Route: 048
     Dates: start: 20241129
  2. HORMONE PELLETS TESTOSTERONE AND ESTRADIOL [Concomitant]
  3. VAGINAL INSERT DHEA, ESTRIOL, ESTRADIOL, PROGESTERONE [Concomitant]
  4. LIOTHYRONINE SODIUM (GENERIC FOR CYTOMEL) [Concomitant]
  5. LEVOTHYROXINE SODIUM (GENERIC FOR SYNTHROID) [Concomitant]
  6. PROGESTERONE MICRONIZED [Concomitant]
  7. PREGABALIN [Concomitant]
     Active Substance: PREGABALIN
  8. VITAMIN C [Concomitant]
     Active Substance: ASCORBIC ACID
  9. VITAMIN D2 [Concomitant]
     Active Substance: ERGOCALCIFEROL
  10. METHYLCARE (ZINC, B6, B12) [Concomitant]
  11. NORDIC NATURALS [Concomitant]
  12. COLLAGEN [Concomitant]
     Active Substance: COLLAGEN
  13. CALCIUM [Concomitant]
     Active Substance: CALCIUM

REACTIONS (1)
  - Anorgasmia [None]

NARRATIVE: CASE EVENT DATE: 20241208
